FAERS Safety Report 18746731 (Version 7)
Quarter: 2022Q2

REPORT INFORMATION
  Report Type: Spontaneous
  Country: US (occurrence: US)
  Receive Date: 20210115
  Receipt Date: 20220425
  Transmission Date: 20220721
  Serious: Yes (Other)
  Sender: FDA-Public Use
  Company Number: US-PFIZER INC-2021025788

PATIENT
  Age: 62 Year
  Sex: Female

DRUGS (7)
  1. XELJANZ [Suspect]
     Active Substance: TOFACITINIB CITRATE
     Indication: Rheumatoid arthritis
     Dosage: 5 MG
  2. XELJANZ [Suspect]
     Active Substance: TOFACITINIB CITRATE
     Dosage: 5 MG, 2X/DAY
     Route: 048
     Dates: start: 202101
  3. XELJANZ [Suspect]
     Active Substance: TOFACITINIB CITRATE
     Dosage: 5 MG, 1X/DAY (SOMETIMES ONLY TAKES 1 DOSE DAILY)
  4. XELJANZ [Suspect]
     Active Substance: TOFACITINIB CITRATE
     Dosage: 5 MG, 2X/DAY
     Dates: end: 202105
  5. XELJANZ [Suspect]
     Active Substance: TOFACITINIB CITRATE
     Dosage: 5 MG, 2X/DAY
     Dates: start: 202106, end: 202202
  6. HYDROCHLOROTHIAZIDE [Concomitant]
     Active Substance: HYDROCHLOROTHIAZIDE
     Dosage: UNK
  7. MELOXICAM [Concomitant]
     Active Substance: MELOXICAM
     Dosage: UNK

REACTIONS (21)
  - Squamous cell carcinoma [Unknown]
  - Malignant melanoma [Recovering/Resolving]
  - Drug ineffective [Unknown]
  - Intentional product use issue [Unknown]
  - Migraine [Not Recovered/Not Resolved]
  - Mobility decreased [Unknown]
  - Pain [Not Recovered/Not Resolved]
  - COVID-19 [Recovering/Resolving]
  - Fatigue [Recovering/Resolving]
  - Infection [Unknown]
  - Arthralgia [Unknown]
  - Arthralgia [Unknown]
  - Hypertension [Unknown]
  - Sinusitis [Recovering/Resolving]
  - Arthropod bite [Unknown]
  - Rash [Unknown]
  - Eczema [Unknown]
  - Condition aggravated [Unknown]
  - Therapeutic response unexpected [Unknown]
  - Skin disorder [Recovering/Resolving]
  - Blood pressure increased [Unknown]

NARRATIVE: CASE EVENT DATE: 20210101
